FAERS Safety Report 9157088 (Version 1)
Quarter: 2013Q1

REPORT INFORMATION
  Report Type: Spontaneous
  Country: GB (occurrence: None)
  Receive Date: 20130131
  Receipt Date: 20130131
  Transmission Date: 20140127
  Serious: Yes (Other)
  Sender: FDA-Public Use
  Company Number: AUR-APL-2013-00919

PATIENT
  Age: 44 Year
  Sex: Female

DRUGS (3)
  1. RIBAVIRIN [Suspect]
     Indication: HEPATITIS C
     Dates: start: 20120910
  2. PEGINTERFERON ALFA-2B (PEGINTERFERON ALFA-2B) [Suspect]
     Indication: HEPATITIS C
     Route: 058
     Dates: start: 20120910
  3. TELAPREVIR [Suspect]
     Indication: HEPATITIS C
     Dosage: 2250 MG (750 MG, 3 IN 1 D), ORAL
     Route: 048
     Dates: start: 20120910, end: 20121203

REACTIONS (17)
  - Anaemia [None]
  - Gait disturbance [None]
  - Nausea [None]
  - Hypertension [None]
  - Sinus tachycardia [None]
  - Oral candidiasis [None]
  - Hordeolum [None]
  - Urinary tract infection [None]
  - Oral pain [None]
  - Dry skin [None]
  - Oral herpes [None]
  - Plicated tongue [None]
  - Vomiting [None]
  - Anorectal discomfort [None]
  - Dyspnoea [None]
  - Aphagia [None]
  - Glossodynia [None]
